FAERS Safety Report 18259217 (Version 6)
Quarter: 2021Q1

REPORT INFORMATION
  Report Type: Report from Study
  Country: None (occurrence: FR)
  Receive Date: 20200911
  Receipt Date: 20210322
  Transmission Date: 20210419
  Serious: Yes (Hospitalization, Other)
  Sender: FDA-Public Use
  Company Number: FR-ABBVIE-20K-056-3561913-00

PATIENT
  Age: 77 Year
  Sex: Male

DRUGS (3)
  1. DUODOPA [Suspect]
     Active Substance: CARBIDOPA\LEVODOPA
     Dosage: MD 6ML, CONTINUOUS FLOW RATE 2.5 ML/H, ADDITIONAL DOSE 3 ML
     Route: 050
  2. DUODOPA [Suspect]
     Active Substance: CARBIDOPA\LEVODOPA
     Indication: PARKINSON^S DISEASE
     Dosage: MORNING DOSE 6ML, CONTINUOUS DOSE 2.5 ML/H, EXTRA DOSE 3 ML
     Route: 050
     Dates: start: 201711
  3. NUTRISON ENERGY MULTI FIBER [Concomitant]
     Indication: ENTERAL NUTRITION

REACTIONS (7)
  - Respiratory tract infection [Not Recovered/Not Resolved]
  - Decubitus ulcer [Not Recovered/Not Resolved]
  - Nasal necrosis [Not Recovered/Not Resolved]
  - Arrhythmia [Not Recovered/Not Resolved]
  - Weight increased [Unknown]
  - Lung disorder [Not Recovered/Not Resolved]
  - Hyperthermia [Not Recovered/Not Resolved]

NARRATIVE: CASE EVENT DATE: 20200908
